FAERS Safety Report 6490992-1 (Version None)
Quarter: 2009Q4

REPORT INFORMATION
  Report Type: 
  Country: None (occurrence: None)
  Receive Date: 20091211
  Receipt Date: 20091207
  Transmission Date: 20100525
  Serious: Yes (Other)
  Sender: FDA-Public Use
  Company Number: GB-BRISTOL-MYERS SQUIBB COMPANY-14886634

PATIENT
  Age: 41 Year
  Sex: Female

DRUGS (2)
  1. CISPLATIN [Suspect]
     Indication: CERVIX CARCINOMA
     Dosage: 26AUG08-01SEP08;26AUG08-15SEP08.
     Dates: start: 20080826, end: 20080915
  2. RADIOTHERAPY [Suspect]
     Indication: CERVIX CARCINOMA
     Dosage: 26AUG08-08SEP08;26AUG08-21SEP08.
     Dates: start: 20080826, end: 20080921

REACTIONS (4)
  - ABDOMINAL PAIN [None]
  - DIARRHOEA [None]
  - NAUSEA [None]
  - VOMITING [None]
